FAERS Safety Report 14685101 (Version 1)
Quarter: 2018Q1

REPORT INFORMATION
  Report Type: Spontaneous
  Country: CN (occurrence: CN)
  Receive Date: 20180327
  Receipt Date: 20180327
  Transmission Date: 20180509
  Serious: Yes (Life-Threatening)
  Sender: FDA-Public Use
  Company Number: CN-PFIZER INC-2018125284

PATIENT
  Age: 50 Year
  Sex: Female

DRUGS (1)
  1. TAZOCIN [Suspect]
     Active Substance: PIPERACILLIN SODIUM\TAZOBACTAM SODIUM
     Indication: INFECTION
     Dosage: 4.5 G, 3X/DAY
     Route: 041
     Dates: start: 20180213, end: 20180213

REACTIONS (9)
  - Face oedema [Recovered/Resolved]
  - Hypoaesthesia [Recovered/Resolved]
  - Urticaria [Recovered/Resolved]
  - Dyspnoea [Recovered/Resolved]
  - Anaphylactic shock [Recovered/Resolved]
  - Hypersensitivity [Recovered/Resolved]
  - Blood pressure fluctuation [Recovered/Resolved]
  - Laryngospasm [Recovered/Resolved]
  - Cardiac arrest [Recovered/Resolved]

NARRATIVE: CASE EVENT DATE: 20180213
